FAERS Safety Report 4850361-4 (Version None)
Quarter: 2005Q4

REPORT INFORMATION
  Report Type: 
  Country: None (occurrence: None)
  Receive Date: 20051207
  Receipt Date: 20051207
  Transmission Date: 20060501
  Serious: Yes (Other)
  Sender: FDA-Public Use
  Company Number: None

PATIENT
  Age: 24 Year
  Sex: Female
  Weight: 43.5453 kg

DRUGS (1)
  1. LEVLEN 28 [Suspect]
     Indication: CONTRACEPTION
     Dosage: ONE TAB PO DAILY
     Route: 048

REACTIONS (2)
  - DRUG INTOLERANCE [None]
  - THERAPEUTIC RESPONSE UNEXPECTED WITH DRUG SUBSTITUTION [None]
